FAERS Safety Report 4899810-6 (Version None)
Quarter: 2006Q1

REPORT INFORMATION
  Report Type: 
  Country: None (occurrence: None)
  Receive Date: 20060113
  Receipt Date: 20050919
  Transmission Date: 20060701
  Serious: No
  Sender: FDA-Public Use
  Company Number: 2005SP002839

PATIENT
  Age: 73 Year
  Sex: Male
  Weight: 78.9259 kg

DRUGS (8)
  1. LUNESTA [Suspect]
     Indication: INSOMNIA
     Dosage: 3 MG; HS; ORAL
     Route: 048
     Dates: start: 20050503, end: 20050101
  2. SIMVASTATIN [Concomitant]
  3. DICLOFENAC EPOLAMINE PATCH [Concomitant]
  4. DOXEPIN [Concomitant]
  5. GUAIFENESIN W/ PSEUDOEPHEDRINE [Concomitant]
  6. VALIUM [Concomitant]
  7. AMBIEN [Concomitant]
  8. TEMAZEPAM [Concomitant]

REACTIONS (2)
  - MIDDLE INSOMNIA [None]
  - POLLAKIURIA [None]
